FAERS Safety Report 5638223-6 (Version None)
Quarter: 2008Q1

REPORT INFORMATION
  Report Type: 
  Country: None (occurrence: None)
  Receive Date: 20080221
  Receipt Date: 20080208
  Transmission Date: 20080703
  Serious: Yes (Death, Hospitalization)
  Sender: FDA-Public Use
  Company Number: 163

PATIENT
  Sex: Male
  Weight: 55.7924 kg

DRUGS (8)
  1. FAZACLO        25 MG ODT [Suspect]
     Indication: SCHIZOPHRENIA
     Dosage: 25 MG PO DAILY
     Route: 048
     Dates: start: 20050518, end: 20070806
  2. PLAVIX [Concomitant]
  3. HALDOL [Concomitant]
  4. LACTULOSE [Concomitant]
  5. MEGACE [Concomitant]
  6. M.V.I. [Concomitant]
  7. TYLENOL PRN [Concomitant]
  8. MOM [Concomitant]

REACTIONS (1)
  - LUNG NEOPLASM MALIGNANT [None]
